FAERS Safety Report 4505382-8 (Version None)
Quarter: 2004Q4

REPORT INFORMATION
  Report Type: 
  Country: None (occurrence: None)
  Receive Date: 20041015
  Receipt Date: 20040325
  Transmission Date: 20050328
  Serious: Yes (Other)
  Sender: FDA-Public Use
  Company Number: 2004021461

PATIENT
  Sex: Male
  Weight: 83.9154 kg

DRUGS (5)
  1. NEURONTIN [Suspect]
     Indication: ARTHRITIS
     Dosage: 900 MG TID ORAL
     Route: 048
     Dates: start: 20030101
  2. EPOGEN [Concomitant]
  3. ANTIHYPERTENSIVE [Concomitant]
  4. ANTI-DIABETICS [Concomitant]
  5. CARDIOVASCULAR SYSTEM DRUGS [Concomitant]

REACTIONS (3)
  - PLATELET COUNT DECREASED [None]
  - RED BLOOD CELL COUNT INCREASED [None]
  - WHITE BLOOD CELL COUNT DECREASED [None]
